FAERS Safety Report 24739142 (Version 4)
Quarter: 2025Q3

REPORT INFORMATION
  Report Type: Spontaneous
  Country: US (occurrence: US)
  Receive Date: 20241216
  Receipt Date: 20250924
  Transmission Date: 20251021
  Serious: Yes (Other)
  Sender: PFIZER
  Company Number: US-PFIZER INC-202400221061

PATIENT
  Age: 45 Year
  Sex: Female

DRUGS (5)
  1. VELSIPITY [Suspect]
     Active Substance: ETRASIMOD ARGININE
     Indication: Anaemia
     Dosage: 2 MG, 1X/DAY (WITH MEAL(S) FOR 30 DAYS)
     Route: 048
     Dates: start: 202408
  2. VELSIPITY [Suspect]
     Active Substance: ETRASIMOD ARGININE
     Indication: Iron deficiency
     Dosage: 2 MG, DAILY(2MG 1 TABLET TAKE 1 TABLET EVERY DAY BY ORAL ROUTE)
     Route: 048
  3. VELSIPITY [Suspect]
     Active Substance: ETRASIMOD ARGININE
     Indication: Folate deficiency
  4. VELSIPITY [Suspect]
     Active Substance: ETRASIMOD ARGININE
     Indication: Colitis
  5. VELSIPITY [Suspect]
     Active Substance: ETRASIMOD ARGININE
     Indication: Colitis ulcerative

REACTIONS (6)
  - Colitis ulcerative [Unknown]
  - Constipation [Unknown]
  - Fatigue [Unknown]
  - Arthralgia [Unknown]
  - Hepatic steatosis [Unknown]
  - Hepatic enzyme abnormal [Unknown]

NARRATIVE: CASE EVENT DATE: 20250301
